FAERS Safety Report 6341206-4 (Version None)
Quarter: 2009Q3

REPORT INFORMATION
  Report Type: 
  Country: None (occurrence: None)
  Receive Date: 20090904
  Receipt Date: 20090511
  Transmission Date: 20100115
  Serious: No
  Sender: FDA-Public Use
  Company Number: A0783525A

PATIENT
  Age: 57 Year
  Sex: Female

DRUGS (3)
  1. REQUIP [Suspect]
     Indication: RESTLESS LEGS SYNDROME
     Route: 048
     Dates: start: 20090505
  2. CRESTOR [Concomitant]
  3. LISINOPRIL [Concomitant]

REACTIONS (1)
  - NECK PAIN [None]
